FAERS Safety Report 19821738 (Version 2)
Quarter: 2021Q4

REPORT INFORMATION
  Report Type: Spontaneous
  Country: US (occurrence: US)
  Receive Date: 20210913
  Receipt Date: 20211011
  Transmission Date: 20220303
  Serious: Yes (Hospitalization, Other)
  Sender: FDA-Public Use
  Company Number: US-MYLANLABS-2021M1060843

PATIENT
  Sex: Male

DRUGS (1)
  1. CLOZAPINE [Suspect]
     Active Substance: CLOZAPINE
     Indication: Schizoaffective disorder
     Dosage: 1.5 DOSAGE FORM

REACTIONS (9)
  - Catatonia [Recovering/Resolving]
  - Suspected counterfeit product [Unknown]
  - Drug ineffective [Unknown]
  - Condition aggravated [Unknown]
  - Hypersomnia [Recovering/Resolving]
  - Nervousness [Recovering/Resolving]
  - Feeling abnormal [Unknown]
  - Agitation [Unknown]
  - Product physical issue [Unknown]

NARRATIVE: CASE EVENT DATE: 20210728
